FAERS Safety Report 23915532 (Version 1)
Quarter: 2024Q2

REPORT INFORMATION
  Report Type: Spontaneous
  Country: US (occurrence: US)
  Receive Date: 20240529
  Receipt Date: 20240529
  Transmission Date: 20240716
  Serious: Yes (Other)
  Sender: FDA-Public Use
  Company Number: US-PFM-2024-03108

PATIENT
  Sex: Male

DRUGS (13)
  1. PROPRANOLOL [Suspect]
     Active Substance: PROPRANOLOL HYDROCHLORIDE
     Indication: Tachycardia
     Dosage: 0.75 MG, QID (4/DAY)  (1 MG/KG/DAY) AND TITRATED TO 1.5 MG EVERY 6 H (2 MG/KG/DAY) OVER THE COURSE O
     Route: 048
  2. PROPRANOLOL [Suspect]
     Active Substance: PROPRANOLOL HYDROCHLORIDE
     Indication: Off label use
  3. ESMOLOL [Suspect]
     Active Substance: ESMOLOL HYDROCHLORIDE
     Indication: Tachycardia
     Dosage: 500 ?G/KG ESMOLOL BOLUS OVER 1 MIN AND A CONTINUOUS INFUSION OF 100 ?G/KG/MIN
     Route: 042
  4. ESMOLOL [Suspect]
     Active Substance: ESMOLOL HYDROCHLORIDE
     Dosage: 100 ?G/KG/MIN AND TITRATED UP TO 400 ?G/KG/MIN OVER 34 H.
     Route: 042
  5. SOTALOL [Suspect]
     Active Substance: SOTALOL
     Indication: Tachycardia
     Dosage: 3 MG/KG/DAY INFUSED OVER 1 H, TID (3/DAY)
     Route: 042
  6. SOTALOL [Suspect]
     Active Substance: SOTALOL
     Dosage: 5 MG/KG/DAY, TID (3/DAY) INFUSED OVER 5 H
     Route: 042
  7. AMIODARONE [Suspect]
     Active Substance: AMIODARONE
     Indication: Tachycardia
     Dosage: 2.5 MG/KG
     Route: 040
  8. AMIODARONE [Suspect]
     Active Substance: AMIODARONE
     Dosage: 10 MG/KG/DAY INFUSION
     Route: 042
  9. AMIODARONE [Suspect]
     Active Substance: AMIODARONE
     Dosage: 20 MG/KG/DAY INFUSION
     Route: 042
  10. FLECAINIDE [Suspect]
     Active Substance: FLECAINIDE
     Indication: Tachycardia
     Dosage: 3 MG/KG/DAY, TID (3/DAY)
     Route: 065
  11. FLECAINIDE [Suspect]
     Active Substance: FLECAINIDE
     Dosage: 4 MG/KG/DAY, TID (3/DAY)
     Route: 065
  12. FLECAINIDE [Suspect]
     Active Substance: FLECAINIDE
     Dosage: 4.5 MG/KG/DAY, TID (3/DAY)
     Route: 065
  13. SOTALOL [Suspect]
     Active Substance: SOTALOL
     Indication: Tachycardia
     Dosage: 5 MG/KG/DAY
     Route: 048

REACTIONS (6)
  - Necrotising colitis [Unknown]
  - Product use in unapproved indication [Unknown]
  - Inappropriate schedule of product administration [Unknown]
  - Product administered to patient of inappropriate age [Unknown]
  - Contraindicated product administered [Unknown]
  - Off label use [Unknown]
